APPROVED DRUG PRODUCT: ANCOBON
Active Ingredient: FLUCYTOSINE
Strength: 500MG
Dosage Form/Route: CAPSULE;ORAL
Application: N017001 | Product #002 | TE Code: AB
Applicant: BAUSCH HEALTH US LLC
Approved: Approved Prior to Jan 1, 1982 | RLD: Yes | RS: Yes | Type: RX